FAERS Safety Report 15353451 (Version 1)
Quarter: 2018Q3

REPORT INFORMATION
  Report Type: Spontaneous
  Country: AT (occurrence: AT)
  Receive Date: 20180905
  Receipt Date: 20180905
  Transmission Date: 20181010
  Serious: Yes (Hospitalization)
  Sender: FDA-Public Use
  Company Number: AT-PFIZER INC-2018354958

PATIENT
  Age: 67 Year
  Sex: Female
  Weight: 70 kg

DRUGS (1)
  1. PACLITAXEL. [Suspect]
     Active Substance: PACLITAXEL
     Indication: OVARIAN EPITHELIAL CANCER METASTATIC
     Dosage: 316.75 MG, UNK

REACTIONS (4)
  - Lividity [Recovered/Resolved]
  - Dyspnoea [Recovered/Resolved]
  - Cardiac arrest [Recovered/Resolved]
  - Respiratory arrest [Recovered/Resolved]
